FAERS Safety Report 13167320 (Version 1)
Quarter: 2017Q1

REPORT INFORMATION
  Report Type: Spontaneous
  Country: US (occurrence: US)
  Receive Date: 20170130
  Receipt Date: 20170130
  Transmission Date: 20170428
  Serious: Yes (Life-Threatening)
  Sender: FDA-Public Use
  Company Number: None

PATIENT
  Age: 73 Year
  Sex: Female
  Weight: 67.5 kg

DRUGS (12)
  1. VALSARTAN. [Suspect]
     Active Substance: VALSARTAN
     Indication: PRODUCT USED FOR UNKNOWN INDICATION
     Route: 048
  2. MAGNESIUM AND ZINC [Concomitant]
  3. FISH OIL [Concomitant]
     Active Substance: FISH OIL
  4. THYROID [Concomitant]
     Active Substance: LEVOTHYROXINE\LIOTHYRONINE
  5. DIOXIN [Concomitant]
  6. MULTIVITAMIN [Concomitant]
     Active Substance: VITAMINS
  7. CARDIA [Concomitant]
     Active Substance: AJMALINE
  8. TOPOREL [Concomitant]
  9. CALCIUM [Concomitant]
     Active Substance: CALCIUM
  10. WARFARIN [Concomitant]
     Active Substance: WARFARIN
  11. VITAMIN D3 [Concomitant]
     Active Substance: CHOLECALCIFEROL
  12. CRANBERRY PILL [Concomitant]
     Active Substance: CRANBERRY

REACTIONS (3)
  - Diarrhoea [None]
  - Nausea [None]
  - Toxicity to various agents [None]

NARRATIVE: CASE EVENT DATE: 20170125
